FAERS Safety Report 11540540 (Version 1)
Quarter: 2015Q3

REPORT INFORMATION
  Report Type: Spontaneous
  Country: US (occurrence: US)
  Receive Date: 20150923
  Receipt Date: 20150923
  Transmission Date: 20151125
  Serious: No
  Sender: FDA-Public Use
  Company Number: US-BEH-2015049415

PATIENT
  Sex: Female
  Weight: 85 kg

DRUGS (35)
  1. PRIVIGEN [Suspect]
     Active Substance: HUMAN IMMUNOGLOBULIN G
     Dosage: 10 GM VIAL; 35 GM EVERY 3 WEEKS; DOSING PERIOD 19-JAN-2015 TO 11MAR2015
     Route: 042
  2. FLONASE [Concomitant]
     Active Substance: FLUTICASONE PROPIONATE
  3. POTASSIUM CL [Concomitant]
     Active Substance: POTASSIUM CHLORIDE
  4. PRILOSEC [Concomitant]
     Active Substance: OMEPRAZOLE MAGNESIUM
  5. PRIVIGEN [Suspect]
     Active Substance: HUMAN IMMUNOGLOBULIN G
     Dosage: 10 GM VIAL; 35 GM EVERY 3 WEEKS; DOSING PERIOD  19FEB2015-11MAR2015
     Route: 042
  6. LASIX [Concomitant]
     Active Substance: FUROSEMIDE
  7. GABAPENTIN. [Concomitant]
     Active Substance: GABAPENTIN
  8. CYANOCOBALAMIN. [Concomitant]
     Active Substance: CYANOCOBALAMIN
  9. VITAMIN D2 [Concomitant]
     Active Substance: ERGOCALCIFEROL
  10. TRAMADOL. [Concomitant]
     Active Substance: TRAMADOL
  11. CEPHALEXIN. [Concomitant]
     Active Substance: CEPHALEXIN
  12. CYANOCOBALAMIN. [Concomitant]
     Active Substance: CYANOCOBALAMIN
  13. KEFLEX [Concomitant]
     Active Substance: CEPHALEXIN
  14. AZITHROMYCIN [Concomitant]
     Active Substance: AZITHROMYCIN ANHYDROUS
  15. SYNTHROID [Concomitant]
     Active Substance: LEVOTHYROXINE SODIUM
  16. BENTYL [Concomitant]
     Active Substance: DICYCLOMINE HYDROCHLORIDE
  17. MOBIC [Concomitant]
     Active Substance: MELOXICAM
  18. RITALIN [Concomitant]
     Active Substance: METHYLPHENIDATE HYDROCHLORIDE
  19. SINGULAIR [Concomitant]
     Active Substance: MONTELUKAST SODIUM
  20. OMEPRAZOLE. [Concomitant]
     Active Substance: OMEPRAZOLE
  21. VITAMIN D3 [Concomitant]
     Active Substance: CHOLECALCIFEROL
  22. VENTOLIN [Concomitant]
     Active Substance: ALBUTEROL SULFATE
  23. SYMBICORT [Concomitant]
     Active Substance: BUDESONIDE\FORMOTEROL FUMARATE DIHYDRATE
  24. FLINTSTONES IRON [Concomitant]
  25. MUCINEX [Concomitant]
     Active Substance: GUAIFENESIN
  26. GLIPIZIDE. [Concomitant]
     Active Substance: GLIPIZIDE
  27. FENOFIBRATE. [Concomitant]
     Active Substance: FENOFIBRATE
  28. PRIVIGEN [Suspect]
     Active Substance: HUMAN IMMUNOGLOBULIN G
     Indication: IMMUNODEFICIENCY COMMON VARIABLE
     Dosage: 5 GM VIAL; 35 GM EVERY 3 WEEKS
     Route: 042
  29. PRIVIGEN [Suspect]
     Active Substance: HUMAN IMMUNOGLOBULIN G
     Dosage: 5 GM VIAL; 35 GM EVERY 3 WEEKS; DOSING PERIOD 19-JAN-2015 TO 11MAR2015
     Route: 042
  30. PRAVASTATIN [Concomitant]
     Active Substance: PRAVASTATIN\PRAVASTATIN SODIUM
  31. METFORMIN [Concomitant]
     Active Substance: METFORMIN HYDROCHLORIDE
  32. PRILOSEC [Concomitant]
     Active Substance: OMEPRAZOLE MAGNESIUM
  33. TEGRETOL [Concomitant]
     Active Substance: CARBAMAZEPINE
  34. GLUCOTROL [Concomitant]
     Active Substance: GLIPIZIDE
  35. MONURAL [Concomitant]

REACTIONS (1)
  - Pyrexia [Recovered/Resolved]
